FAERS Safety Report 6609976-5 (Version None)
Quarter: 2010Q1

REPORT INFORMATION
  Report Type: 
  Country: None (occurrence: None)
  Receive Date: 20100224
  Receipt Date: 20100215
  Transmission Date: 20100710
  Serious: Yes (Disabling)
  Sender: FDA-Public Use
  Company Number: 2010-00133

PATIENT
  Age: 63 Year
  Sex: Male
  Weight: 70 kg

DRUGS (5)
  1. RAMIPRIL [Suspect]
     Indication: HYPERTENSION
     Dosage: 10 MG (1 IN 1 D),ORAL
     Route: 048
     Dates: start: 20070101
  2. SIMVASTATIN [Concomitant]
  3. ASPIRIN [Concomitant]
  4. NIFEDIPINE [Concomitant]
  5. INSULIN SOURCE UNSPECIFIED (IROULIN) [Concomitant]

REACTIONS (9)
  - ABDOMINAL PAIN UPPER [None]
  - ANGINA PECTORIS [None]
  - CHEST PAIN [None]
  - DECREASED APPETITE [None]
  - DISEASE RECURRENCE [None]
  - FATIGUE [None]
  - GASTRITIS [None]
  - INSOMNIA [None]
  - VIRAL INFECTION [None]
